FAERS Safety Report 21973581 (Version 1)
Quarter: 2023Q1

REPORT INFORMATION
  Report Type: Spontaneous
  Country: US (occurrence: US)
  Receive Date: 20230209
  Receipt Date: 20230209
  Transmission Date: 20230418
  Serious: Yes (Hospitalization, Other)
  Sender: FDA-Public Use
  Company Number: US-SAMSUNG BIOEPIS-SB-2023-03201

PATIENT
  Age: 53 Year
  Sex: Male

DRUGS (4)
  1. INFLIXIMAB [Suspect]
     Active Substance: INFLIXIMAB
     Indication: Crohn^s disease
     Dosage: UNKNOWN
     Route: 065
  2. PREDNISONE [Concomitant]
     Active Substance: PREDNISONE
     Indication: Crohn^s disease
     Route: 048
  3. PREDNISONE [Concomitant]
     Active Substance: PREDNISONE
     Dosage: WITH A GRADUAL TAPER DOSE UNKNOWN
     Route: 048
  4. SULFASALAZINE [Concomitant]
     Active Substance: SULFASALAZINE
     Indication: Crohn^s disease
     Route: 065

REACTIONS (13)
  - Endocarditis [Recovering/Resolving]
  - Sepsis [Unknown]
  - Crohn^s disease [Unknown]
  - Cardiac failure [Recovering/Resolving]
  - Aortic valve incompetence [Recovering/Resolving]
  - Bacteraemia [Unknown]
  - Terminal ileitis [Recovering/Resolving]
  - Ileal ulcer [Recovering/Resolving]
  - Diverticulitis [Unknown]
  - Cholecystitis [Unknown]
  - Anaemia [Unknown]
  - Colitis [Unknown]
  - Immunodeficiency [Unknown]
